FAERS Safety Report 14315351 (Version 4)
Quarter: 2018Q1

REPORT INFORMATION
  Report Type: Report from Study
  Country: US (occurrence: US)
  Receive Date: 20171221
  Receipt Date: 20180322
  Transmission Date: 20180509
  Serious: Yes (Hospitalization, Other)
  Sender: FDA-Public Use
  Company Number: US-ACTELION-A-NJ2017-164544

PATIENT
  Age: 69 Year
  Sex: Female
  Weight: 64.4 kg

DRUGS (2)
  1. VELETRI [Suspect]
     Active Substance: EPOPROSTENOL
     Indication: PULMONARY ARTERIAL HYPERTENSION
     Dosage: 18 NG/KG, PER MIN
     Route: 042
  2. REVATIO [Concomitant]
     Active Substance: SILDENAFIL CITRATE

REACTIONS (8)
  - Salivary gland enlargement [Unknown]
  - Optic nerve disorder [Unknown]
  - Lower limb fracture [Unknown]
  - Chest discomfort [Unknown]
  - Inflammation [Unknown]
  - Fall [Unknown]
  - Thyroiditis [Unknown]
  - Fatigue [Unknown]
